FAERS Safety Report 5650402-0 (Version None)
Quarter: 2008Q1

REPORT INFORMATION
  Report Type: 
  Country: None (occurrence: None)
  Receive Date: 20080304
  Receipt Date: 20080304
  Transmission Date: 20080703
  Serious: Yes (Life-Threatening, Hospitalization)
  Sender: FDA-Public Use
  Company Number: None

PATIENT
  Age: 43 Year
  Sex: Male
  Weight: 81.6475 kg

DRUGS (2)
  1. WARFARIN SODIUM [Suspect]
     Indication: ISCHAEMIC HEART DISEASE PROPHYLAXIS
     Dosage: 5 MG VARIES ON PT LEVEL PO
     Route: 048
     Dates: start: 20071227, end: 20080203
  2. WARFARIN SODIUM [Suspect]
     Indication: THROMBOSIS PROPHYLAXIS
     Dosage: 5 MG VARIES ON PT LEVEL PO
     Route: 048
     Dates: start: 20071227, end: 20080203

REACTIONS (3)
  - MYOCARDIAL INFARCTION [None]
  - PHARMACEUTICAL PRODUCT COMPLAINT [None]
  - PROTHROMBIN TIME SHORTENED [None]
